FAERS Safety Report 16213058 (Version 2)
Quarter: 2019Q2

REPORT INFORMATION
  Report Type: Spontaneous
  Country: US (occurrence: US)
  Receive Date: 20190418
  Receipt Date: 20190612
  Transmission Date: 20190711
  Serious: Yes (Hospitalization, Other)
  Sender: FDA-Public Use
  Company Number: US-JNJFOC-20190424970

PATIENT
  Age: 57 Year
  Sex: Male
  Weight: 87.9 kg

DRUGS (3)
  1. TREMFYA [Suspect]
     Active Substance: GUSELKUMAB
     Indication: PSORIASIS
     Route: 058
     Dates: start: 20180606, end: 20190403
  2. AMLODIPINE [Concomitant]
     Active Substance: AMLODIPINE BESYLATE
     Indication: HYPERTENSION
     Route: 065
  3. CRISABOROLE [Concomitant]
     Active Substance: CRISABOROLE
     Route: 061

REACTIONS (9)
  - Blood glucose increased [Recovering/Resolving]
  - Pollakiuria [Unknown]
  - Hyperkalaemia [Recovered/Resolved]
  - Urinary tract infection [Unknown]
  - Acute kidney injury [Recovered/Resolved]
  - Hyponatraemia [Recovered/Resolved]
  - Lethargy [Recovered/Resolved]
  - Metabolic encephalopathy [Recovered/Resolved]
  - Type 2 diabetes mellitus [Unknown]

NARRATIVE: CASE EVENT DATE: 20190403
